FAERS Safety Report 8243242-X (Version None)
Quarter: 2012Q1

REPORT INFORMATION
  Report Type: 
  Country: None (occurrence: None)
  Receive Date: 20120314
  Receipt Date: 20101123
  Transmission Date: 20120608
  Serious: Yes (Other)
  Sender: FDA-Public Use
  Company Number: PHHY2010US68028

PATIENT
  Age: 64 Year
  Sex: Female

DRUGS (8)
  1. TEMAZEPAM [Concomitant]
  2. LEVOTHYROXINE SODIUM [Concomitant]
  3. VANICREAM(MACROGOL, PROPYLENE GLYCOL, SIMETICONE, SORBIC ACID, SORBITO [Concomitant]
  4. FLURBIPROFEN [Concomitant]
  5. CYCLOBENZAPRINE HCL [Concomitant]
  6. FANAPT [Suspect]
     Indication: BIPOLAR I DISORDER
     Dosage: 6MG, BID, ORAL
     Route: 048
     Dates: start: 20100923
  7. CLONAZEPAM [Concomitant]
  8. MUSCLE RELAXANTS (NO INGREDIENTS/SUBSTANCES) [Concomitant]

REACTIONS (2)
  - TREMOR [None]
  - CONVULSION [None]
